FAERS Safety Report 17912164 (Version 2)
Quarter: 2022Q1

REPORT INFORMATION
  Report Type: Spontaneous
  Country: IT (occurrence: IT)
  Receive Date: 20200618
  Receipt Date: 20220101
  Transmission Date: 20220423
  Serious: Yes (Hospitalization, Other)
  Sender: FDA-Public Use
  Company Number: IT-NOVARTISPH-NVSC2019IT072110

PATIENT
  Age: 39 Year
  Sex: Female

DRUGS (2)
  1. IMATINIB [Suspect]
     Active Substance: IMATINIB
     Indication: Philadelphia positive chronic myeloid leukaemia
     Dosage: 400 MG, QD
     Route: 065
     Dates: start: 201711, end: 201712
  2. IMATINIB [Suspect]
     Active Substance: IMATINIB
     Dosage: 600 MG QD
     Route: 065
     Dates: start: 201807, end: 201807

REACTIONS (4)
  - Neutropenia [Recovering/Resolving]
  - Drug ineffective [Recovering/Resolving]
  - Drug resistance [Recovered/Resolved]
  - Gene mutation [Unknown]

NARRATIVE: CASE EVENT DATE: 20180101
